FAERS Safety Report 13504272 (Version 1)
Quarter: 2017Q2

REPORT INFORMATION
  Report Type: Spontaneous
  Country: US (occurrence: US)
  Receive Date: 20170502
  Receipt Date: 20170502
  Transmission Date: 20170830
  Serious: No
  Sender: FDA-Public Use
  Company Number: US-ASTRAZENECA-2016SE21936

PATIENT
  Sex: Female

DRUGS (18)
  1. LISINOPRIL. [Concomitant]
     Active Substance: LISINOPRIL
  2. AMARYL [Concomitant]
     Active Substance: GLIMEPIRIDE
  3. GLUCOPHAGE-XR [Concomitant]
  4. CRESTOR [Concomitant]
     Active Substance: ROSUVASTATIN CALCIUM
  5. PRINZIDE [Concomitant]
     Active Substance: HYDROCHLOROTHIAZIDE\LISINOPRIL
  6. CLARITIN [Concomitant]
     Active Substance: LORATADINE
  7. BYDUREON [Suspect]
     Active Substance: EXENATIDE
     Route: 065
  8. ASPIRIN. [Concomitant]
     Active Substance: ASPIRIN
  9. PEPCID [Concomitant]
     Active Substance: FAMOTIDINE
  10. PROVENTIL [Concomitant]
     Active Substance: ALBUTEROL
  11. VENTOLIN [Concomitant]
     Active Substance: ALBUTEROL SULFATE
  12. LOTRISONE [Concomitant]
     Active Substance: BETAMETHASONE DIPROPIONATE\CLOTRIMAZOLE
  13. BENADRYL [Concomitant]
     Active Substance: DIPHENHYDRAMINE HYDROCHLORIDE
  14. ADVIL [Concomitant]
     Active Substance: IBUPROFEN
  15. PHENAZOPYRIDINE. [Concomitant]
     Active Substance: PHENAZOPYRIDINE
  16. LYRICA [Concomitant]
     Active Substance: PREGABALIN
  17. MOTRIN [Concomitant]
     Active Substance: IBUPROFEN
  18. TRADJENTA [Concomitant]
     Active Substance: LINAGLIPTIN

REACTIONS (1)
  - Diarrhoea [Unknown]
